FAERS Safety Report 7094019-2 (Version None)
Quarter: 2010Q4

REPORT INFORMATION
  Report Type: 
  Country: None (occurrence: None)
  Receive Date: 20101110
  Receipt Date: 20101101
  Transmission Date: 20110411
  Serious: Yes (Hospitalization)
  Sender: FDA-Public Use
  Company Number: US-ASTRAZENECA-2010SE52055

PATIENT
  Sex: Male

DRUGS (6)
  1. SEROQUEL [Suspect]
     Indication: BIPOLAR DISORDER
     Route: 048
     Dates: start: 20000101
  2. XANAX [Concomitant]
  3. FLOMAX [Concomitant]
  4. OXYCODONE HCL [Concomitant]
  5. LORTAB [Concomitant]
  6. TEMAZEPAM [Concomitant]

REACTIONS (3)
  - PARKINSON'S DISEASE [None]
  - PROSTATIC DISORDER [None]
  - SUICIDAL IDEATION [None]
